FAERS Safety Report 7583822-8 (Version None)
Quarter: 2011Q2

REPORT INFORMATION
  Report Type: 
  Country: None (occurrence: None)
  Receive Date: 20110630
  Receipt Date: 20110621
  Transmission Date: 20111010
  Serious: Yes (Life-Threatening, Hospitalization)
  Sender: FDA-Public Use
  Company Number: NL-ROCHE-785452

PATIENT
  Sex: Male

DRUGS (7)
  1. METFORMIN HCL [Concomitant]
     Route: 048
  2. SIMVASTATIN [Concomitant]
     Route: 048
  3. AVASTIN [Suspect]
     Route: 031
     Dates: start: 20110125
  4. DILTIAZEM [Concomitant]
     Route: 048
  5. LOSARTAN POTASSIUM [Concomitant]
     Route: 048
  6. ENALAPRIL MALEATE [Concomitant]
     Route: 048
  7. INSULINUM ASPARTUM [Concomitant]
     Route: 058

REACTIONS (2)
  - CARDIAC ASTHMA [None]
  - CARDIAC OPERATION [None]
